FAERS Safety Report 11913147 (Version 2)
Quarter: 2016Q1

REPORT INFORMATION
  Report Type: Report from Study
  Country: PL (occurrence: PL)
  Receive Date: 20160113
  Receipt Date: 20160205
  Transmission Date: 20160526
  Serious: Yes (Hospitalization)
  Sender: FDA-Public Use
  Company Number: PL-ROCHE-1689102

PATIENT
  Age: 49 Year
  Sex: Female
  Weight: 71 kg

DRUGS (13)
  1. NOLIPREL [Concomitant]
     Indication: RESPIRATORY TRACT HAEMORRHAGE
     Dosage: USED AS TREATMENT FOR HEMORRHAGIC MUCOSITIS OF UPPER RESPIRATORY TRACT
     Route: 042
  2. METOPROLOL TARTRATE. [Concomitant]
     Active Substance: METOPROLOL TARTRATE
     Indication: RESPIRATORY TRACT HAEMORRHAGE
     Dosage: FOR DIFFUSE REPOLARISATION CHANGES
     Route: 065
     Dates: start: 20150519
  3. DOXORUBICIN [Suspect]
     Active Substance: DOXORUBICIN
     Indication: HER-2 POSITIVE BREAST CANCER
     Route: 065
     Dates: start: 20140916
  4. KALIPOZ PROLONGATUM [Concomitant]
     Indication: HYPOKALAEMIA
     Route: 065
     Dates: start: 20141231
  5. TAMOXIFEN [Concomitant]
     Active Substance: TAMOXIFEN
     Indication: ADJUVANT THERAPY
     Route: 065
     Dates: start: 20150311
  6. PERTUZUMAB [Suspect]
     Active Substance: PERTUZUMAB
     Indication: HER-2 POSITIVE BREAST CANCER
     Dosage: LOADING DOSE
     Route: 042
     Dates: start: 20141209
  7. ANESTELOC [Concomitant]
     Active Substance: PANTOPRAZOLE SODIUM
     Indication: PROPHYLAXIS
     Route: 065
     Dates: start: 20150320
  8. TRASTUZUMAB EMTANSINE [Suspect]
     Active Substance: ADO-TRASTUZUMAB EMTANSINE
     Indication: HER-2 POSITIVE BREAST CANCER
     Dosage: DOSE 255.6 MG, DATE OF MOST RECENT DOSE PRIOR TO SAE: 14/DEC/2015
     Route: 042
     Dates: start: 20141209
  9. PERTUZUMAB [Suspect]
     Active Substance: PERTUZUMAB
     Dosage: MAINTENENCE DOSE, DATE OF MOST RECENT DOSE PRIOR TO SAE: 14/DEC/2015
     Route: 042
  10. CYCLOPHOSPHAMIDE. [Suspect]
     Active Substance: CYCLOPHOSPHAMIDE
     Indication: HER-2 POSITIVE BREAST CANCER
     Route: 065
     Dates: start: 20140916
  11. METOPROLOL TARTRATE. [Concomitant]
     Active Substance: METOPROLOL TARTRATE
     Dosage: FOR HEMORRHAGIC MUCOSITIS OF UPPER RESPIRATORY TRACT
     Route: 042
  12. ONDANSETRON [Concomitant]
     Active Substance: ONDANSETRON
     Indication: VOMITING
     Route: 065
     Dates: start: 20141231
  13. NOLIPREL [Concomitant]
     Indication: HYPERTENSION
     Route: 065
     Dates: start: 20150301

REACTIONS (1)
  - Respiratory tract haemorrhage [Recovered/Resolved with Sequelae]

NARRATIVE: CASE EVENT DATE: 20151218
